FAERS Safety Report 5749051-5 (Version None)
Quarter: 2008Q2

REPORT INFORMATION
  Report Type: 
  Country: None (occurrence: None)
  Receive Date: 20080522
  Receipt Date: 20080507
  Transmission Date: 20081010
  Serious: Yes (Death)
  Sender: FDA-Public Use
  Company Number: DSA_31810_2008

PATIENT
  Age: 66 Year
  Sex: Female

DRUGS (7)
  1. DILTIAZEM [Suspect]
     Dosage: NOT THE PRESCRIBED AMOUNT
  2. AMITRIPTLINE HCL [Suspect]
     Dosage: NOT THE PRESCRIBED AMOUNT
  3. ANADIN XTRA (ANADIN EXTRA - ACETYLSALICYLIC ACID + CAFFEINE + PARACETA [Suspect]
     Dosage: NOT THE PRESCRIBED AMOUNT
  4. MIRTAZAPINE [Suspect]
     Dosage: NOT THE PRESCRIBED AMOUNT
  5. PLIVA - ZOPICLINE [Suspect]
     Dosage: NOT THE PRESCRIBED AMOUNT
  6. PLIVA - ZOPICLONE [Suspect]
     Indication: SLEEP DISORDER
     Dosage: 7.5 MG QD ORAL
     Route: 048
  7. ASPIRIN [Concomitant]

REACTIONS (3)
  - ACUTE PULMONARY OEDEMA [None]
  - COMPLETED SUICIDE [None]
  - MULTIPLE DRUG OVERDOSE INTENTIONAL [None]
